FAERS Safety Report 13660560 (Version 11)
Quarter: 2018Q2

REPORT INFORMATION
  Report Type: Spontaneous
  Country: TW (occurrence: TW)
  Receive Date: 20170616
  Receipt Date: 20180621
  Transmission Date: 20180711
  Serious: Yes (Other)
  Sender: FDA-Public Use
  Company Number: TW-PFIZER INC-2017256387

PATIENT
  Age: 64 Year
  Sex: Male

DRUGS (4)
  1. SUTENT [Suspect]
     Active Substance: SUNITINIB MALATE
     Indication: RENAL CELL CARCINOMA
     Dosage: 50 MG/DAY, CYCLIC (TWO WEEKS ON AND ONE WEEK OFF)
     Route: 048
     Dates: start: 20170423, end: 20170505
  2. SUTENT [Suspect]
     Active Substance: SUNITINIB MALATE
     Dosage: 50 MG, CYCLIC  (TWO WEEKS ON AND ONE WEEK OFF)
     Route: 048
     Dates: start: 20170701, end: 20171013
  3. SUTENT [Suspect]
     Active Substance: SUNITINIB MALATE
     Dosage: 50 MG, CYCLIC (TWO WEEKS ON AND ONE WEEK OFF)
     Route: 048
     Dates: start: 20170525, end: 20170624
  4. SUTENT [Suspect]
     Active Substance: SUNITINIB MALATE
     Dosage: 37.5 MG/DAY,CYCLIC  (TWO WEEKS ON AND ONE WEEK OFF)
     Route: 048
     Dates: start: 20171014

REACTIONS (30)
  - Platelet count decreased [Not Recovered/Not Resolved]
  - White blood cell count decreased [Not Recovered/Not Resolved]
  - Fatigue [Not Recovered/Not Resolved]
  - Skin abrasion [Recovered/Resolved]
  - Blood uric acid increased [Not Recovered/Not Resolved]
  - Neoplasm of orbit [Not Recovered/Not Resolved]
  - Palmar-plantar erythrodysaesthesia syndrome [Not Recovered/Not Resolved]
  - Dysgeusia [Not Recovered/Not Resolved]
  - Blood urea increased [Not Recovered/Not Resolved]
  - Blood creatinine increased [Not Recovered/Not Resolved]
  - Aspartate aminotransferase increased [Not Recovered/Not Resolved]
  - Dizziness [Recovered/Resolved]
  - Flatulence [Recovered/Resolved]
  - Blood alkaline phosphatase increased [Recovered/Resolved]
  - Stomatitis [Recovered/Resolved]
  - Hypertension [Not Recovered/Not Resolved]
  - Herpes zoster [Recovered/Resolved]
  - Hyperuricaemia [Not Recovered/Not Resolved]
  - Epistaxis [Not Recovered/Not Resolved]
  - Face oedema [Not Recovered/Not Resolved]
  - Asthenia [Not Recovered/Not Resolved]
  - Rash [Recovered/Resolved]
  - Decreased appetite [Not Recovered/Not Resolved]
  - Anaemia [Not Recovered/Not Resolved]
  - Periorbital oedema [Not Recovered/Not Resolved]
  - Melaena [Not Recovered/Not Resolved]
  - Second primary malignancy [Not Recovered/Not Resolved]
  - Blood lactate dehydrogenase increased [Not Recovered/Not Resolved]
  - Nausea [Recovered/Resolved]
  - Diarrhoea [Not Recovered/Not Resolved]

NARRATIVE: CASE EVENT DATE: 2017
